FAERS Safety Report 17929961 (Version 1)
Quarter: 2020Q2

REPORT INFORMATION
  Report Type: Other
  Country: US (occurrence: US)
  Receive Date: 20200623
  Receipt Date: 20200623
  Transmission Date: 20200714
  Serious: No
  Sender: FDA-Public Use
  Company Number: US-BIOVITRUM-2019US0210

PATIENT
  Age: 65 Year
  Sex: Male

DRUGS (4)
  1. KINERET [Suspect]
     Active Substance: ANAKINRA
     Route: 058
     Dates: start: 201901
  2. ATORVASTATIN [Concomitant]
     Active Substance: ATORVASTATIN
  3. RANITIDINE. [Concomitant]
     Active Substance: RANITIDINE
  4. VITAMINS [Concomitant]
     Active Substance: VITAMINS

REACTIONS (10)
  - Gait disturbance [Unknown]
  - Injection site pruritus [Unknown]
  - Urticaria [Unknown]
  - Inflammation [Unknown]
  - Injection site pain [Unknown]
  - Hypersensitivity [Unknown]
  - Injection site induration [Unknown]
  - Fatigue [Unknown]
  - Injection site erythema [Unknown]
  - Injection site bruising [Unknown]

NARRATIVE: CASE EVENT DATE: 2019
